FAERS Safety Report 17516568 (Version 1)
Quarter: 2020Q1

REPORT INFORMATION
  Report Type: Report from Study
  Country: QA (occurrence: QA)
  Receive Date: 20200309
  Receipt Date: 20200309
  Transmission Date: 20200409
  Serious: Yes (Other)
  Sender: FDA-Public Use
  Company Number: QA-PFIZER INC-2020097772

PATIENT
  Sex: Female

DRUGS (1)
  1. DINOPROSTONE. [Suspect]
     Active Substance: DINOPROSTONE
     Indication: LABOUR INDUCTION
     Dosage: UNK (DOSES OF PGE2 WERE REPEATED UP TO FIVE TIMES) (REPEATED AFTER INTERVAL OF 24 HOURS)

REACTIONS (1)
  - Postpartum haemorrhage [Unknown]
